FAERS Safety Report 8111990-8 (Version None)
Quarter: 2012Q1

REPORT INFORMATION
  Report Type: 
  Country: None (occurrence: None)
  Receive Date: 20120203
  Receipt Date: 20120130
  Transmission Date: 20120608
  Serious: Yes (Disabling, Other)
  Sender: FDA-Public Use
  Company Number: US-PFIZER INC-2012025311

PATIENT
  Sex: Female
  Weight: 58.957 kg

DRUGS (5)
  1. WELLBUTRIN [Concomitant]
     Dosage: UNK
  2. LYRICA [Suspect]
     Indication: MYALGIA
     Dosage: 75 MG, 3X/DAY
     Route: 048
     Dates: start: 20110101
  3. BENICAR [Concomitant]
     Dosage: UNK
  4. EFFEXOR [Concomitant]
     Dosage: UNK
  5. LYRICA [Suspect]
     Indication: PAIN OF SKIN
     Dosage: 50 MG, 2X/DAY
     Route: 048
     Dates: start: 20100101, end: 20110101

REACTIONS (3)
  - NEUROPATHY PERIPHERAL [None]
  - ASTHMA [None]
  - PAIN [None]
